FAERS Safety Report 14270908 (Version 2)
Quarter: 2017Q4

REPORT INFORMATION
  Report Type: Spontaneous
  Country: US (occurrence: US)
  Receive Date: 20171211
  Receipt Date: 20171213
  Transmission Date: 20180321
  Serious: Yes (Other)
  Sender: FDA-Public Use
  Company Number: US-OTSUKA-12487039

PATIENT
  Sex: Female
  Weight: 70.29 kg

DRUGS (3)
  1. LEXAPRO [Suspect]
     Active Substance: ESCITALOPRAM OXALATE
     Indication: ANXIETY
     Dosage: 20 MG, UNK
     Route: 048
     Dates: start: 20030510, end: 20040107
  2. ABILIFY [Suspect]
     Active Substance: ARIPIPRAZOLE
     Indication: AUTISM SPECTRUM DISORDER
     Dosage: 15 MG, QD
     Route: 048
  3. LEXAPRO [Suspect]
     Active Substance: ESCITALOPRAM OXALATE
     Indication: ANXIETY
     Dosage: 20 MG, QD
     Route: 048

REACTIONS (10)
  - Glucose tolerance impaired [Unknown]
  - Constipation [Unknown]
  - Fear [Unknown]
  - Nightmare [Unknown]
  - Acne [Unknown]
  - Weight increased [Unknown]
  - Polycystic ovaries [Unknown]
  - Insulin resistance [Unknown]
  - Dyskinesia [Unknown]
  - Sleep disorder [Unknown]
